FAERS Safety Report 11839891 (Version 1)
Quarter: 2015Q4

REPORT INFORMATION
  Report Type: Spontaneous
  Country: JP (occurrence: JP)
  Receive Date: 20151216
  Receipt Date: 20151216
  Transmission Date: 20160305
  Serious: Yes (Death)
  Sender: FDA-Public Use
  Company Number: JP-ASTRAZENECA-2015SF24709

PATIENT
  Age: 10956 Day
  Sex: Female
  Weight: 52 kg

DRUGS (4)
  1. SEROQUEL [Suspect]
     Active Substance: QUETIAPINE FUMARATE
     Route: 048
  2. LENDORMIN [Suspect]
     Active Substance: BROTIZOLAM
     Route: 065
  3. PAXIL [Suspect]
     Active Substance: PAROXETINE HYDROCHLORIDE
     Route: 065
  4. DESYREL [Suspect]
     Active Substance: TRAZODONE HYDROCHLORIDE
     Route: 065

REACTIONS (8)
  - Drug abuse [Fatal]
  - Asphyxia [Fatal]
  - Toxicity to various agents [Fatal]
  - Multi-organ disorder [Fatal]
  - Anoxia [Fatal]
  - Pulmonary oedema [Fatal]
  - Petechiae [Fatal]
  - Periportal sinus dilatation [Fatal]
